FAERS Safety Report 9213549 (Version 1)
Quarter: 2013Q2

REPORT INFORMATION
  Report Type: Spontaneous
  Country: US (occurrence: US)
  Receive Date: 20130405
  Receipt Date: 20130405
  Transmission Date: 20140414
  Serious: No
  Sender: FDA-Public Use
  Company Number: US-009507513-1304USA000149

PATIENT
  Sex: Male

DRUGS (4)
  1. ZOCOR [Suspect]
  2. LIPITOR [Concomitant]
     Indication: HYPERLIPIDAEMIA
     Dosage: 10 UNITS, QHS
     Route: 048
  3. TYLENOL [Concomitant]
  4. LISINOPRIL [Concomitant]

REACTIONS (6)
  - Drug hypersensitivity [Unknown]
  - Dizziness [Recovered/Resolved]
  - General physical health deterioration [Recovered/Resolved]
  - Malaise [Recovered/Resolved]
  - Dermatitis atopic [Recovered/Resolved]
  - Head discomfort [Recovered/Resolved]
